FAERS Safety Report 10427755 (Version 3)
Quarter: 2015Q1

REPORT INFORMATION
  Report Type: Spontaneous
  Country: US (occurrence: IT)
  Receive Date: 20140903
  Receipt Date: 20150102
  Transmission Date: 20150720
  Serious: Yes (Other)
  Sender: FDA-Public Use
  Company Number: IT-FRI-1000070337

PATIENT
  Age: 40 Year
  Sex: Male

DRUGS (4)
  1. ASENAPINE [Suspect]
     Active Substance: ASENAPINE
     Indication: BIPOLAR DISORDER
     Dosage: 10 MG
     Route: 060
     Dates: start: 20140716, end: 20140717
  2. LAROXYL [Concomitant]
     Active Substance: AMITRIPTYLINE
     Dosage: 9 DROPS
  3. DAPAROX [Concomitant]
     Active Substance: PAROXETINE HYDROCHLORIDE
     Dosage: 20 DROPS
  4. RIVOTRIL [Concomitant]
     Active Substance: CLONAZEPAM
     Dosage: 28 DROPS

REACTIONS (5)
  - Speech disorder [Recovering/Resolving]
  - Gait disturbance [Recovering/Resolving]
  - Confusional state [Recovering/Resolving]
  - Dyskinesia [Recovering/Resolving]
  - Syncope [Recovering/Resolving]

NARRATIVE: CASE EVENT DATE: 20140717
